FAERS Safety Report 9935154 (Version 1)
Quarter: 2014Q1

REPORT INFORMATION
  Report Type: Spontaneous
  Country: AU (occurrence: AU)
  Receive Date: 20140228
  Receipt Date: 20140228
  Transmission Date: 20141002
  Serious: Yes (Other)
  Sender: FDA-Public Use
  Company Number: AU-PFIZER INC-2014058656

PATIENT
  Age: 83 Year
  Sex: Female

DRUGS (1)
  1. EFEXOR XR [Suspect]
     Indication: DEPRESSION
     Dosage: 150, 1X/DAY
     Route: 048
     Dates: end: 20140125

REACTIONS (2)
  - Parkinsonism [Recovered/Resolved]
  - Dysphagia [Recovered/Resolved]
